FAERS Safety Report 6544497-X (Version None)
Quarter: 2010Q1

REPORT INFORMATION
  Report Type: 
  Country: None (occurrence: None)
  Receive Date: 20100120
  Receipt Date: 20100120
  Transmission Date: 20100710
  Serious: Yes (Life-Threatening, Other)
  Sender: FDA-Public Use
  Company Number: None

PATIENT
  Age: 35 Year
  Sex: Female
  Weight: 58.9676 kg

DRUGS (1)
  1. MACROBID [Suspect]
     Indication: PROPHYLAXIS URINARY TRACT INFECTION
     Dosage: 100MG QD PO
     Route: 048
     Dates: start: 20091201, end: 20091208

REACTIONS (9)
  - ANXIETY [None]
  - CHILLS [None]
  - FATIGUE [None]
  - HEADACHE [None]
  - MUSCLE SPASMS [None]
  - MYALGIA [None]
  - OEDEMA PERIPHERAL [None]
  - PYREXIA [None]
  - RASH [None]
